FAERS Safety Report 9917915 (Version 3)
Quarter: 2014Q4

REPORT INFORMATION
  Report Type: Spontaneous
  Country: FR (occurrence: FR)
  Receive Date: 20140222
  Receipt Date: 20141222
  Transmission Date: 20150529
  Serious: Yes (Hospitalization)
  Sender: FDA-Public Use
  Company Number: FR-ROCHE-1351266

PATIENT
  Age: 64 Year
  Sex: Female
  Weight: 45 kg

DRUGS (12)
  1. DAFALGAN [Concomitant]
     Active Substance: ACETAMINOPHEN
     Route: 048
  2. AERIUS (FRANCE) [Concomitant]
  3. LASILIX [Concomitant]
     Active Substance: FUROSEMIDE
  4. DETICENE [Suspect]
     Active Substance: DACARBAZINE
     Indication: PRODUCT USED FOR UNKNOWN INDICATION
     Route: 042
     Dates: start: 20130926, end: 20131022
  5. RENAGEL [Concomitant]
     Active Substance: SEVELAMER HYDROCHLORIDE
     Route: 048
  6. TENORMIN [Concomitant]
     Active Substance: ATENOLOL
     Route: 048
  7. KAYEXALATE [Concomitant]
     Active Substance: SODIUM POLYSTYRENE SULFONATE
     Route: 048
  8. COZAAR [Concomitant]
     Active Substance: LOSARTAN POTASSIUM
     Route: 048
  9. ZELBORAF [Suspect]
     Active Substance: VEMURAFENIB
     Indication: MALIGNANT MELANOMA
     Route: 048
     Dates: start: 20130731, end: 20130830
  10. ZELBORAF [Suspect]
     Active Substance: VEMURAFENIB
     Dosage: HALF DOSE
     Route: 048
     Dates: start: 20130905, end: 20131022
  11. DEDROGYL [Concomitant]
     Active Substance: CALCIFEDIOL
     Route: 048
  12. ALPRESS LP [Concomitant]
     Route: 048

REACTIONS (4)
  - Anaemia [Recovered/Resolved]
  - Febrile neutropenia [Recovered/Resolved]
  - Pancytopenia [Recovered/Resolved]
  - Thrombocytopenia [Recovered/Resolved]

NARRATIVE: CASE EVENT DATE: 20130819
